FAERS Safety Report 6520217-X (Version None)
Quarter: 2009Q4

REPORT INFORMATION
  Report Type: 
  Country: None (occurrence: None)
  Receive Date: 20091229
  Receipt Date: 20091214
  Transmission Date: 20100525
  Serious: Yes (Other)
  Sender: FDA-Public Use
  Company Number: PHHY2009BR56214

PATIENT
  Age: 17 Year
  Sex: Male

DRUGS (2)
  1. RITALIN [Suspect]
     Indication: PSYCHOMOTOR HYPERACTIVITY
     Dosage: 1 DF, QD
     Route: 048
     Dates: start: 20050101
  2. RITALIN [Suspect]
     Dosage: 2 DF, BID
     Route: 048

REACTIONS (2)
  - DEPRESSION [None]
  - TABLET ISSUE [None]
